FAERS Safety Report 4515446-0 (Version None)
Quarter: 2004Q4

REPORT INFORMATION
  Report Type: 
  Country: None (occurrence: None)
  Receive Date: 20041126
  Receipt Date: 20041111
  Transmission Date: 20050328
  Serious: Yes (Hospitalization)
  Sender: FDA-Public Use
  Company Number: 2004093393

PATIENT
  Age: 67 Year
  Sex: Female
  Weight: 111.1313 kg

DRUGS (5)
  1. BEXTRA [Suspect]
     Indication: OSTEOARTHRITIS
     Dosage: 20 NG (20 NG, 1 IN 1 D), ORAL
     Route: 048
     Dates: start: 20031101
  2. FLUOXETINE HYDROCHLORIDE [Concomitant]
  3. ALPRAZOLAM [Concomitant]
  4. ATENOLOL [Concomitant]
  5. PARCETAMOL (PARCETAMOL) [Concomitant]

REACTIONS (3)
  - CERVICAL POLYP [None]
  - RASH PRURITIC [None]
  - VAGINAL HAEMORRHAGE [None]
